FAERS Safety Report 23264943 (Version 1)
Quarter: 2023Q4

REPORT INFORMATION
  Report Type: Spontaneous
  Country: US (occurrence: US)
  Receive Date: 20231206
  Receipt Date: 20231206
  Transmission Date: 20240110
  Serious: Yes (Hospitalization)
  Sender: FDA-Public Use
  Company Number: US-STERISCIENCE B.V.-2023-ST-000222

PATIENT
  Age: 22 Year
  Sex: Male

DRUGS (12)
  1. BUPIVACAINE [Suspect]
     Active Substance: BUPIVACAINE
     Indication: Cancer pain
     Dosage: INTRATHECAL PUMP WAS IMPLANTED
     Route: 037
  2. BUPIVACAINE [Suspect]
     Active Substance: BUPIVACAINE
     Indication: Pain in extremity
  3. KETAMINE [Suspect]
     Active Substance: KETAMINE
     Indication: Cancer pain
     Dosage: INTRAVENOUS INFUSION
     Route: 042
  4. KETAMINE [Suspect]
     Active Substance: KETAMINE
     Indication: Pain in extremity
  5. HYDROMORPHONE [Suspect]
     Active Substance: HYDROMORPHONE
     Indication: Cancer pain
     Dosage: INTRATHECAL PUMP WAS IMPLANTED
     Route: 037
  6. HYDROMORPHONE [Suspect]
     Active Substance: HYDROMORPHONE
     Indication: Pain in extremity
  7. DEXMEDETOMIDINE [Suspect]
     Active Substance: DEXMEDETOMIDINE
     Indication: Cancer pain
     Dosage: EVENTUAL PALLIATIVE SEDATION
     Route: 065
  8. DEXMEDETOMIDINE [Suspect]
     Active Substance: DEXMEDETOMIDINE
     Indication: Pain in extremity
  9. IPILIMUMAB [Suspect]
     Active Substance: IPILIMUMAB
     Indication: Clear cell sarcoma of soft tissue
     Dosage: UNK
     Route: 065
  10. IPILIMUMAB [Suspect]
     Active Substance: IPILIMUMAB
     Indication: Sarcoma metastatic
  11. NIVOLUMAB [Suspect]
     Active Substance: NIVOLUMAB
     Indication: Clear cell sarcoma of soft tissue
     Dosage: UNK
     Route: 065
  12. NIVOLUMAB [Suspect]
     Active Substance: NIVOLUMAB
     Indication: Sarcoma metastatic

REACTIONS (1)
  - Drug ineffective for unapproved indication [Unknown]
